FAERS Safety Report 9249832 (Version 1)
Quarter: 2013Q2

REPORT INFORMATION
  Report Type: Report from Study
  Country: MX (occurrence: MX)
  Receive Date: 20130423
  Receipt Date: 20130423
  Transmission Date: 20140414
  Serious: Yes (Other)
  Sender: FDA-Public Use
  Company Number: PHHY2013MX027220

PATIENT
  Age: 70 Year
  Sex: Male

DRUGS (2)
  1. EXELON [Suspect]
     Indication: PARKINSON^S DISEASE
     Dosage: 4.6 MG, DAILY (1 PATCH IN THE NIGHT)
     Route: 062
     Dates: start: 20101123
  2. AKATINOL [Concomitant]
     Indication: PARKINSON^S DISEASE
     Dosage: 1 DF, QD
     Dates: start: 201011

REACTIONS (1)
  - Abnormal behaviour [Not Recovered/Not Resolved]
